FAERS Safety Report 4612503-5 (Version None)
Quarter: 2005Q1

REPORT INFORMATION
  Report Type: 
  Country: None (occurrence: None)
  Receive Date: 20050318
  Receipt Date: 20050127
  Transmission Date: 20050727
  Serious: Yes (Hospitalization)
  Sender: FDA-Public Use
  Company Number: 200510343JP

PATIENT
  Age: 67 Year
  Sex: Female
  Weight: 57 kg

DRUGS (6)
  1. ARAVA [Suspect]
     Indication: RHEUMATOID ARTHRITIS
     Route: 048
     Dates: start: 20041111, end: 20050221
  2. VOLTAREN [Concomitant]
     Indication: RHEUMATOID ARTHRITIS
     Dosage: DOSE UNIT: UNITS
     Route: 054
  3. ULGUT [Concomitant]
     Indication: GASTROINTESTINAL DISORDER
     Dosage: DOSE: 2 CAPSULES
     Route: 048
  4. ULGUT [Concomitant]
     Indication: PROPHYLAXIS
     Dosage: DOSE: 2 CAPSULES
     Route: 048
  5. PERSANTIN-L [Concomitant]
     Indication: MYOCARDIAL INFARCTION
     Route: 048
  6. EUGLUCON [Concomitant]
     Indication: DIABETES MELLITUS
     Route: 048

REACTIONS (10)
  - BLOOD GLUCOSE INCREASED [None]
  - CARDIAC FAILURE [None]
  - COUGH [None]
  - DRUG INEFFECTIVE [None]
  - DYSPNOEA [None]
  - GLYCOSYLATED HAEMOGLOBIN INCREASED [None]
  - HAEMOGLOBIN DECREASED [None]
  - LEFT VENTRICULAR FAILURE [None]
  - RED BLOOD CELL COUNT DECREASED [None]
  - WHITE BLOOD CELL COUNT INCREASED [None]
